FAERS Safety Report 5638089-4 (Version None)
Quarter: 2008Q1

REPORT INFORMATION
  Report Type: 
  Country: None (occurrence: None)
  Receive Date: 20080131
  Receipt Date: 20071105
  Transmission Date: 20080703
  Serious: No
  Sender: FDA-Public Use
  Company Number: 163-21880-07110312

PATIENT
  Age: 84 Year
  Sex: Female

DRUGS (1)
  1. REVLIMID [Suspect]
     Indication: MYELODYSPLASTIC SYNDROME
     Dosage: 2.5 MG, 1 IN 2 D, ORAL
     Route: 048
     Dates: start: 20070901

REACTIONS (4)
  - GOUTY ARTHRITIS [None]
  - INFECTION [None]
  - INSOMNIA [None]
  - STOMATITIS [None]
